FAERS Safety Report 20254960 (Version 1)
Quarter: 2021Q4

REPORT INFORMATION
  Report Type: Spontaneous
  Country: US (occurrence: US)
  Receive Date: 20211230
  Receipt Date: 20211230
  Transmission Date: 20220303
  Serious: No
  Sender: FDA-Public Use
  Company Number: US-STRONGBRIDGE BIOPHARMA-2021-STR-000232

PATIENT
  Sex: Male

DRUGS (2)
  1. KEVEYIS [Suspect]
     Active Substance: DICHLORPHENAMIDE
     Indication: Familial periodic paralysis
     Dosage: 50 MG, BID
     Route: 048
     Dates: start: 20180503
  2. KEVEYIS [Suspect]
     Active Substance: DICHLORPHENAMIDE
     Dosage: 50 MG, BID
     Route: 048

REACTIONS (3)
  - Condition aggravated [Recovered/Resolved]
  - Muscular weakness [Unknown]
  - Nerve injury [Unknown]
